FAERS Safety Report 20233056 (Version 2)
Quarter: 2022Q1

REPORT INFORMATION
  Report Type: Report from Study
  Country: GB (occurrence: GB)
  Receive Date: 20211227
  Receipt Date: 20220112
  Transmission Date: 20220423
  Serious: Yes (Death, Life-Threatening, Hospitalization)
  Sender: FDA-Public Use
  Company Number: GB-PFIZER INC-202101786430

PATIENT
  Age: 64 Year
  Sex: Male
  Weight: 91 kg

DRUGS (1)
  1. CRIZOTINIB [Suspect]
     Active Substance: CRIZOTINIB
     Indication: Non-small cell lung cancer stage IV
     Dosage: 250 MG, 2X/DAY
     Route: 048
     Dates: start: 20210526, end: 20211215

REACTIONS (2)
  - Dyspnoea [Fatal]
  - COVID-19 [Fatal]

NARRATIVE: CASE EVENT DATE: 20211211
